FAERS Safety Report 26099659 (Version 1)
Quarter: 2025Q4

REPORT INFORMATION
  Report Type: Spontaneous
  Country: CA (occurrence: CA)
  Receive Date: 20251128
  Receipt Date: 20251128
  Transmission Date: 20260118
  Serious: Yes (Other)
  Sender: ALK-ABELLO
  Company Number: CA-ALK-ABELLO A/S-2025AA004066

PATIENT

DRUGS (2)
  1. STERILE DILUENT FOR ALLERGENIC EXTRACT NOS [Suspect]
     Active Substance: ALBUMIN HUMAN OR GLYCERIN OR PHENOL
     Indication: Conjunctivitis allergic
     Dosage: UNK
     Dates: start: 202410
  2. STERILE DILUENT FOR ALLERGENIC EXTRACT NOS [Suspect]
     Active Substance: ALBUMIN HUMAN OR GLYCERIN OR PHENOL
     Dosage: UNK
     Dates: start: 202410

REACTIONS (3)
  - Anaphylactic reaction [Unknown]
  - Eye pruritus [Recovered/Resolved]
  - Urticaria [Recovered/Resolved]
